FAERS Safety Report 7477979-7 (Version None)
Quarter: 2011Q2

REPORT INFORMATION
  Report Type: 
  Country: None (occurrence: None)
  Receive Date: 20110513
  Receipt Date: 20110511
  Transmission Date: 20111010
  Serious: Yes (Death)
  Sender: FDA-Public Use
  Company Number: CN-BAYER-2011-039009

PATIENT
  Age: 66 Year
  Sex: Female

DRUGS (1)
  1. AVELOX [Suspect]
     Indication: PYREXIA
     Dosage: 400 MG, ONCE
     Dates: start: 20110505, end: 20110505

REACTIONS (3)
  - DEATH [None]
  - HEPATIC ENZYME INCREASED [None]
  - INJECTION RELATED REACTION [None]
